FAERS Safety Report 17997022 (Version 5)
Quarter: 2022Q2

REPORT INFORMATION
  Report Type: Report from Study
  Country: BR (occurrence: BR)
  Receive Date: 20200708
  Receipt Date: 20220527
  Transmission Date: 20220721
  Serious: Yes (Other)
  Sender: FDA-Public Use
  Company Number: PHHY2018BR048612

PATIENT
  Age: 57 Year
  Sex: Female
  Weight: 85 kg

DRUGS (14)
  1. XOLAIR [Suspect]
     Active Substance: OMALIZUMAB
     Indication: Asthma
     Dosage: 300 MG, BIW(STARTED 3 YERAS AGO)
     Route: 058
  2. XOLAIR [Suspect]
     Active Substance: OMALIZUMAB
     Dosage: 300 MG, BIW (TWO INJECTIONS-150 MG)
     Route: 065
     Dates: start: 20171107
  3. XOLAIR [Suspect]
     Active Substance: OMALIZUMAB
     Dosage: 1 DF, BIW (1 TIME, EVERY 15 DAYS)
     Route: 065
  4. XOLAIR [Suspect]
     Active Substance: OMALIZUMAB
     Dosage: UNK
     Route: 065
     Dates: start: 20210119
  5. XOLAIR [Suspect]
     Active Substance: OMALIZUMAB
     Dosage: UNK
     Route: 065
     Dates: start: 20210202
  6. XOLAIR [Suspect]
     Active Substance: OMALIZUMAB
     Dosage: UNK
     Route: 065
     Dates: start: 20210216
  7. XOLAIR [Suspect]
     Active Substance: OMALIZUMAB
     Dosage: UNK
     Route: 065
     Dates: start: 20210309
  8. XOLAIR [Suspect]
     Active Substance: OMALIZUMAB
     Dosage: UNK, EVERY 15 DAYS
     Route: 065
  9. XOLAIR [Suspect]
     Active Substance: OMALIZUMAB
     Dosage: UNK
     Route: 065
     Dates: start: 20220512
  10. AMLODIPINE [Suspect]
     Active Substance: AMLODIPINE BESYLATE
     Indication: Hypertension
     Dosage: 5 MG, QD
     Route: 048
  11. SERETIDE [Concomitant]
     Active Substance: FLUTICASONE PROPIONATE\SALMETEROL XINAFOATE
     Indication: Asthma
     Dosage: 2.5 UG, BID
     Route: 055
  12. SPIRIVA [Concomitant]
     Active Substance: TIOTROPIUM BROMIDE MONOHYDRATE
     Indication: Asthma
     Dosage: 2,5MCG, QD
     Route: 055
  13. FUROSEMIDE [Concomitant]
     Active Substance: FUROSEMIDE
     Indication: Hypertension
     Dosage: 2 DF, QD (ONE AND HALF TABLET IN MORNING AND HALF TABLET AT NIGHT)
     Route: 048
  14. LOSARTAN [Concomitant]
     Active Substance: LOSARTAN
     Indication: Hypertension
     Dosage: 50 MG, BID
     Route: 048

REACTIONS (18)
  - Blindness [Unknown]
  - Fatigue [Recovering/Resolving]
  - Asthmatic crisis [Recovering/Resolving]
  - Wheezing [Recovering/Resolving]
  - Malaise [Not Recovered/Not Resolved]
  - Weight decreased [Unknown]
  - Varicose vein [Unknown]
  - Pain in extremity [Unknown]
  - Upper limb fracture [Unknown]
  - Hypertension [Unknown]
  - Influenza [Recovering/Resolving]
  - Gait disturbance [Unknown]
  - Bronchitis [Unknown]
  - Pruritus [Unknown]
  - Dyspnoea [Recovering/Resolving]
  - Product dose omission issue [Unknown]
  - Off label use [Unknown]
  - Product prescribing issue [Unknown]

NARRATIVE: CASE EVENT DATE: 20180601
